FAERS Safety Report 5873733-8 (Version None)
Quarter: 2008Q3

REPORT INFORMATION
  Report Type: 
  Country: None (occurrence: None)
  Receive Date: 20080904
  Receipt Date: 20080904
  Transmission Date: 20090109
  Serious: Yes (Life-Threatening, Hospitalization)
  Sender: FDA-Public Use
  Company Number: None

PATIENT
  Age: 47 Year
  Sex: Male

DRUGS (2)
  1. FUROSEMIDE [Suspect]
     Indication: RENAL FAILURE CHRONIC
     Dosage: 160 MG BID PO
     Route: 048
     Dates: start: 20070131, end: 20080819
  2. METOLAZONE [Suspect]
     Indication: RENAL FAILURE CHRONIC
     Dosage: 5 MG OTHER PO
     Route: 048
     Dates: start: 20080109, end: 20080723

REACTIONS (2)
  - FALL [None]
  - HYPOKALAEMIA [None]
